FAERS Safety Report 15123070 (Version 8)
Quarter: 2020Q1

REPORT INFORMATION
  Report Type: Spontaneous
  Country: US (occurrence: US)
  Receive Date: 20180709
  Receipt Date: 20200109
  Transmission Date: 20200409
  Serious: Yes (Hospitalization)
  Sender: FDA-Public Use
  Company Number: US-ACTELION-A-US2018-175096

PATIENT
  Sex: Female

DRUGS (1)
  1. OPSUMIT [Suspect]
     Active Substance: MACITENTAN
     Indication: PULMONARY ARTERIAL HYPERTENSION
     Dosage: 10 MG, QD
     Route: 048
     Dates: start: 20141007

REACTIONS (7)
  - Arthropod bite [Recovered/Resolved]
  - Product dose omission [Unknown]
  - Peripheral swelling [Recovered/Resolved]
  - Unevaluable event [Unknown]
  - Malaise [Unknown]
  - Influenza [Unknown]
  - Hospitalisation [Unknown]
